FAERS Safety Report 13398748 (Version 1)
Quarter: 2017Q2

REPORT INFORMATION
  Report Type: Spontaneous
  Country: US (occurrence: US)
  Receive Date: 20170403
  Receipt Date: 20170403
  Transmission Date: 20170830
  Serious: Yes (Hospitalization, Other)
  Sender: FDA-Public Use
  Company Number: US-ELI_LILLY_AND_COMPANY-US201703011319

PATIENT
  Age: 0 Year
  Sex: Female

DRUGS (5)
  1. LEVEMIR [Concomitant]
     Active Substance: INSULIN DETEMIR
     Indication: TYPE 2 DIABETES MELLITUS
  2. ACETAMINOPHEN. [Concomitant]
     Active Substance: ACETAMINOPHEN
     Indication: PAIN
  3. HUMALOG [Suspect]
     Active Substance: INSULIN LISPRO
     Indication: TYPE 2 DIABETES MELLITUS
     Dosage: 16 U, TID
     Route: 058
     Dates: start: 2011
  4. ACETAMINOPHEN. [Concomitant]
     Active Substance: ACETAMINOPHEN
     Indication: NASOPHARYNGITIS
  5. ACETAMINOPHEN. [Concomitant]
     Active Substance: ACETAMINOPHEN
     Indication: HEADACHE

REACTIONS (9)
  - Lower limb fracture [Recovered/Resolved]
  - Syncope [Recovered/Resolved]
  - Headache [Recovering/Resolving]
  - Lower limb fracture [Recovered/Resolved]
  - Fall [Recovered/Resolved]
  - Small cell lung cancer [Recovering/Resolving]
  - Cardiac procedure complication [Recovered/Resolved]
  - Fall [Recovered/Resolved]
  - Viral upper respiratory tract infection [Not Recovered/Not Resolved]

NARRATIVE: CASE EVENT DATE: 2012
